FAERS Safety Report 10694551 (Version 3)
Quarter: 2015Q2

REPORT INFORMATION
  Report Type: Spontaneous
  Country: US (occurrence: US)
  Receive Date: 20150107
  Receipt Date: 20150630
  Transmission Date: 20150821
  Serious: No
  Sender: FDA-Public Use
  Company Number: US-BIOGENIDEC-2015BI000632

PATIENT
  Age: 47 Year
  Sex: Female

DRUGS (2)
  1. AMPYRA [Concomitant]
     Active Substance: DALFAMPRIDINE
     Dates: start: 201412
  2. TECFIDERA [Suspect]
     Active Substance: DIMETHYL FUMARATE
     Indication: MULTIPLE SCLEROSIS
     Route: 048
     Dates: start: 20131201

REACTIONS (11)
  - Reading disorder [Not Recovered/Not Resolved]
  - Memory impairment [Not Recovered/Not Resolved]
  - Dysgraphia [Not Recovered/Not Resolved]
  - Mobility decreased [Recovered/Resolved]
  - Visual impairment [Not Recovered/Not Resolved]
  - Feeling abnormal [Not Recovered/Not Resolved]
  - Balance disorder [Not Recovered/Not Resolved]
  - Somnolence [Not Recovered/Not Resolved]
  - Headache [Not Recovered/Not Resolved]
  - Cognitive disorder [Not Recovered/Not Resolved]
  - Fall [Recovered/Resolved]

NARRATIVE: CASE EVENT DATE: 201312
